FAERS Safety Report 12069437 (Version 6)
Quarter: 2016Q2

REPORT INFORMATION
  Report Type: Report from Study
  Country: CA (occurrence: CA)
  Receive Date: 20160211
  Receipt Date: 20160401
  Transmission Date: 20160815
  Serious: Yes (Hospitalization, Other)
  Sender: FDA-Public Use
  Company Number: CA-BIOGEN-2015BI144854

PATIENT
  Age: 58 Year
  Sex: Female
  Weight: 87.62 kg

DRUGS (12)
  1. COVERSYL [Concomitant]
     Active Substance: PERINDOPRIL
     Indication: HYPERTENSION
     Route: 048
     Dates: start: 2007
  2. VITAMIN B12 [Concomitant]
     Active Substance: CYANOCOBALAMIN
     Indication: SUPPLEMENTATION THERAPY
     Route: 048
     Dates: start: 20120915
  3. CITALOPRAM [Concomitant]
     Active Substance: CITALOPRAM HYDROBROMIDE
     Indication: DEPRESSION
     Route: 048
     Dates: start: 1990
  4. AMANTADINE [Concomitant]
     Active Substance: AMANTADINE
     Indication: FATIGUE
     Route: 048
     Dates: start: 20101201
  5. VITAMIN D [Concomitant]
     Active Substance: CHOLECALCIFEROL
     Indication: SUPPLEMENTATION THERAPY
     Dates: start: 20040101
  6. ASA [Concomitant]
     Active Substance: ASPIRIN
     Indication: PROPHYLAXIS
     Dates: start: 2000
  7. POTASSIUM [Concomitant]
     Active Substance: POTASSIUM
     Indication: HYPOKALAEMIA
     Route: 048
     Dates: start: 20151017
  8. PANTOPRAZOLE [Concomitant]
     Active Substance: PANTOPRAZOLE SODIUM
     Indication: GASTROOESOPHAGEAL REFLUX DISEASE
     Route: 048
     Dates: start: 2003
  9. BACLOFEN. [Concomitant]
     Active Substance: BACLOFEN
     Indication: MUSCLE SPASMS
     Route: 048
     Dates: start: 20120124
  10. CLOBETASOL [Concomitant]
     Active Substance: CLOBETASOL
     Indication: LICHEN SCLEROSUS
     Route: 061
     Dates: start: 20140814
  11. TYSABRI [Suspect]
     Active Substance: NATALIZUMAB
     Indication: SECONDARY PROGRESSIVE MULTIPLE SCLEROSIS
     Route: 042
     Dates: start: 20140514, end: 20150930
  12. CALCIUM [Concomitant]
     Active Substance: CALCIUM
     Indication: SUPPLEMENTATION THERAPY
     Dates: start: 20110101

REACTIONS (1)
  - Pericarditis constrictive [Recovered/Resolved]

NARRATIVE: CASE EVENT DATE: 20151024
